FAERS Safety Report 10102735 (Version 1)
Quarter: 2014Q2

REPORT INFORMATION
  Report Type: Spontaneous
  Country: US (occurrence: US)
  Receive Date: 20140424
  Receipt Date: 20140424
  Transmission Date: 20141212
  Serious: No
  Sender: FDA-Public Use
  Company Number: US-ROXANE LABORATORIES, INC.-2014-RO-00671RO

PATIENT
  Age: 67 Year
  Sex: Female
  Weight: 116 kg

DRUGS (3)
  1. PREDNISONE [Suspect]
     Indication: IMMUNE SYSTEM DISORDER
     Dosage: 30 MG
     Route: 048
     Dates: start: 20140424
  2. CELLCEPT [Concomitant]
     Indication: IMMUNE SYSTEM DISORDER
     Dosage: 1500 MG
     Route: 048
     Dates: start: 20130218
  3. OXYGEN THERAPY [Concomitant]
     Indication: IDIOPATHIC PULMONARY FIBROSIS
     Route: 065
     Dates: start: 20131209

REACTIONS (1)
  - Weight increased [Unknown]
